FAERS Safety Report 24758496 (Version 3)
Quarter: 2025Q4

REPORT INFORMATION
  Report Type: Spontaneous
  Country: US (occurrence: None)
  Receive Date: 20241220
  Receipt Date: 20251030
  Transmission Date: 20260118
  Serious: No
  Sender: UCB
  Company Number: US-UCBSA-2024058438

PATIENT
  Age: 36 Year
  Weight: 97.522 kg

DRUGS (4)
  1. BIMZELX [Suspect]
     Active Substance: BIMEKIZUMAB-BKZX
     Indication: Psoriasis
     Dosage: 320 MILLIGRAM, EV 4 WEEKS
  2. BIMZELX [Suspect]
     Active Substance: BIMEKIZUMAB-BKZX
     Indication: Psoriatic arthropathy
  3. MAGNESIUM [Concomitant]
     Active Substance: MAGNESIUM
     Indication: Product used for unknown indication
     Dosage: UNK
  4. PRENATAL MULTI [Concomitant]
     Indication: Product used for unknown indication
     Dosage: UNK

REACTIONS (2)
  - Pain [Unknown]
  - Illness [Unknown]
